FAERS Safety Report 21926922 (Version 1)
Quarter: 2023Q1

REPORT INFORMATION
  Report Type: Spontaneous
  Country: US (occurrence: None)
  Receive Date: 20230128
  Receipt Date: 20230128
  Transmission Date: 20230417
  Serious: Yes (Other)
  Sender: FDA-Public Use
  Company Number: None

PATIENT
  Age: 22 Year
  Sex: Male
  Weight: 66.15 kg

DRUGS (4)
  1. FAMOTIDINE [Suspect]
     Active Substance: FAMOTIDINE
     Indication: Gastrointestinal sounds abnormal
     Dosage: FREQUENCY : AT BEDTIME;?
     Route: 030
     Dates: start: 20221115, end: 20230128
  2. LATUDA [Concomitant]
     Active Substance: LURASIDONE HYDROCHLORIDE
  3. TEA LEAF [Concomitant]
     Active Substance: TEA LEAF
  4. CANNABIS SATIVA SUBSP. INDICA TOP [Concomitant]
     Active Substance: CANNABIS SATIVA SUBSP. INDICA TOP

REACTIONS (3)
  - Hypersensitivity [None]
  - Back pain [None]
  - Back pain [None]

NARRATIVE: CASE EVENT DATE: 20230128
